FAERS Safety Report 7906687-0 (Version None)
Quarter: 2011Q4

REPORT INFORMATION
  Report Type: 
  Country: None (occurrence: None)
  Receive Date: 20111110
  Receipt Date: 20111102
  Transmission Date: 20120403
  Serious: Yes (Hospitalization)
  Sender: FDA-Public Use
  Company Number: FR-JNJFOC-20111009791

PATIENT
  Age: 79 Year
  Sex: Female

DRUGS (12)
  1. ACETAMINOPHEN AND CODEINE PHOSPHATE [Concomitant]
     Route: 065
  2. NEXIUM [Concomitant]
     Route: 065
  3. OPATANOL [Concomitant]
     Route: 065
  4. CALCIUM CARBONATE [Concomitant]
     Route: 065
  5. BISOPROLOL FUMARATE [Concomitant]
     Route: 065
  6. OLMESARTAN MEDOXOMIL [Concomitant]
     Route: 065
  7. DEXERYL [Concomitant]
     Route: 065
  8. DURAGESIC-100 [Suspect]
     Indication: SCIATICA
     Route: 062
     Dates: start: 20110610, end: 20110621
  9. LORAZEPAM [Concomitant]
     Route: 065
  10. POLYETHYLENE GLYCOL [Concomitant]
     Route: 065
  11. INDAPAMIDE [Concomitant]
     Route: 065
  12. XYZAL [Concomitant]
     Route: 065

REACTIONS (4)
  - MALAISE [None]
  - SOMNOLENCE [None]
  - MIOSIS [None]
  - PSYCHOMOTOR RETARDATION [None]
